FAERS Safety Report 17099712 (Version 2)
Quarter: 2019Q4

REPORT INFORMATION
  Report Type: Spontaneous
  Country: DE (occurrence: DE)
  Receive Date: 20191202
  Receipt Date: 20191204
  Transmission Date: 20200122
  Serious: Yes (Hospitalization)
  Sender: FDA-Public Use
  Company Number: DE-MYLANLABS-2019M1115652

PATIENT
  Age: 72 Year
  Sex: Male

DRUGS (9)
  1. RAMIPRIL. [Concomitant]
     Active Substance: RAMIPRIL
     Dosage: 2.5 MG, 1-0-0, TABLETTEN
     Route: 048
  2. AMLODIPINE [Suspect]
     Active Substance: AMLODIPINE BESYLATE
     Indication: PRODUCT USED FOR UNKNOWN INDICATION
     Dosage: 5 MG, 1-0-1, TABLETTEN
     Route: 048
  3. CLOPIDOGREL [Concomitant]
     Active Substance: CLOPIDOGREL BISULFATE
     Dosage: 75 MILLIGRAM, QD
     Route: 048
  4. MILGAMMA NA                        /01350701/ [Concomitant]
     Dosage: 1-0-1, KAPSELN
     Route: 048
  5. TILIDIN [Concomitant]
     Active Substance: NALOXONE HYDROCHLORIDE\TILIDINE HYDROCHLORIDE
     Dosage: 100|8 MG,, BID
     Route: 048
  6. ATORVASTATIN [Concomitant]
     Active Substance: ATORVASTATIN
     Dosage: 40 MG, 0-0-1, TABLETTEN
     Route: 048
  7. ACETYLSALICYLSAEURE [Concomitant]
     Active Substance: ASPIRIN
     Dosage: 100 MILLIGRAM, QD
     Route: 048
  8. ZOPICLON [Concomitant]
     Active Substance: ZOPICLONE
     Dosage: 7.5 MG, 0-0-1, TABLETTEN
     Route: 048
  9. METAMIZOL                          /06276701/ [Concomitant]
     Active Substance: METAMIZOLE
     Dosage: 500 MG, 1-1-1-1, TABLETTEN
     Route: 048

REACTIONS (2)
  - Chest pain [Unknown]
  - Product dose omission [Unknown]

NARRATIVE: CASE EVENT DATE: 20170827
